FAERS Safety Report 6862411-4 (Version None)
Quarter: 2010Q3

REPORT INFORMATION
  Report Type: 
  Country: None (occurrence: None)
  Receive Date: 20100716
  Receipt Date: 20100706
  Transmission Date: 20110219
  Serious: Yes (Other)
  Sender: FDA-Public Use
  Company Number: 2010MA000612

PATIENT
  Age: 58 Year
  Sex: Female

DRUGS (8)
  1. GABAPENTIN TABLETS, 800 MG (PUREPAC) (GABAPENTIN) [Suspect]
     Dosage: ; HS; PO
     Route: 048
     Dates: start: 20100409, end: 20100526
  2. CITALOPRAM [Concomitant]
  3. OMEPRAZOLE [Concomitant]
  4. SUMATRIPTAN [Concomitant]
  5. LEVOTHYROXINE SODIUM [Concomitant]
  6. DIAZEPAM [Concomitant]
  7. PARACETAMOL [Concomitant]
  8. ALENDRONIC ACID [Concomitant]

REACTIONS (3)
  - PRODUCT SUBSTITUTION ISSUE [None]
  - SLEEP DISORDER [None]
  - SUICIDAL BEHAVIOUR [None]
